FAERS Safety Report 4599920-7 (Version None)
Quarter: 2005Q1

REPORT INFORMATION
  Report Type: 
  Country: None (occurrence: None)
  Receive Date: 20050303
  Receipt Date: 20050224
  Transmission Date: 20050727
  Serious: Yes (Hospitalization)
  Sender: FDA-Public Use
  Company Number: 163-20785-04080302

PATIENT
  Age: 53 Year
  Sex: Male
  Weight: 65.318 kg

DRUGS (9)
  1. THALOMID [Suspect]
     Indication: MULTIPLE MYELOMA
     Dosage: SEE IMAGE
     Route: 048
     Dates: end: 20040801
  2. THALOMID [Suspect]
     Indication: MULTIPLE MYELOMA
     Dosage: SEE IMAGE
     Route: 048
     Dates: start: 20040801
  3. REGLAN [Concomitant]
  4. MS CONTIN [Concomitant]
  5. PREVACID [Suspect]
  6. COLACE (DOCUSATE SODIUM) [Concomitant]
  7. MIRALAX [Concomitant]
  8. PERCOCET [Concomitant]
  9. CARTIA (DILTIAZEM) [Concomitant]

REACTIONS (8)
  - HAEMATOCRIT DECREASED [None]
  - HAEMOGLOBIN DECREASED [None]
  - HYPOXIA [None]
  - MALIGNANT NEOPLASM PROGRESSION [None]
  - MULTIPLE MYELOMA [None]
  - NEUROPATHY [None]
  - RED BLOOD CELL COUNT ABNORMAL [None]
  - URINARY TRACT INFECTION [None]
